FAERS Safety Report 7901842-8 (Version None)
Quarter: 2011Q4

REPORT INFORMATION
  Report Type: 
  Country: None (occurrence: None)
  Receive Date: 20111108
  Receipt Date: 20111028
  Transmission Date: 20120403
  Serious: Yes (Hospitalization)
  Sender: FDA-Public Use
  Company Number: US-ALEXION PHARMACEUTICALS INC.-A201101595

PATIENT
  Sex: Female
  Weight: 78.3 kg

DRUGS (7)
  1. SOLIRIS [Suspect]
     Indication: PAROXYSMAL NOCTURNAL HAEMOGLOBINURIA
     Dosage: 900 MG, Q12-14 DAYS
     Route: 042
     Dates: start: 20090201
  2. PROGRAF [Concomitant]
     Indication: APLASTIC ANAEMIA
     Dosage: 5 MG, BID
     Route: 048
  3. EXJADE [Concomitant]
     Indication: IRON OVERLOAD
     Dosage: 200 MG, BID
     Route: 048
  4. NEURONTIN [Concomitant]
     Indication: PAIN
     Dosage: 600 MG, TID
     Route: 048
  5. ACYCLOVIR [Concomitant]
     Dosage: 400 MG, TID
     Route: 048
  6. ACYCLOVIR [Concomitant]
     Indication: PROPHYLAXIS
     Dosage: UNK
     Route: 048
  7. PENTAMIDINE [Concomitant]
     Dosage: UNK, QMONTH

REACTIONS (6)
  - BLOOD URINE PRESENT [None]
  - HERPES SIMPLEX [None]
  - VULVOVAGINAL PAIN [None]
  - BLOOD LACTATE DEHYDROGENASE INCREASED [None]
  - ESCHERICHIA URINARY TRACT INFECTION [None]
  - PROCTALGIA [None]
